FAERS Safety Report 7853243-9 (Version None)
Quarter: 2011Q4

REPORT INFORMATION
  Report Type: 
  Country: None (occurrence: None)
  Receive Date: 20111026
  Receipt Date: 20111017
  Transmission Date: 20120403
  Serious: Yes (Hospitalization, Disabling, Other)
  Sender: FDA-Public Use
  Company Number: US-MERCK-1106USA00884

PATIENT
  Age: 58 Year
  Sex: Female

DRUGS (6)
  1. FOSAMAX [Suspect]
     Route: 048
     Dates: start: 20051101, end: 20080701
  2. FOSAMAX PLUS D [Suspect]
     Indication: OSTEOPOROSIS
     Route: 048
     Dates: start: 20030601, end: 20040301
  3. VITAMINS (UNSPECIFIED) [Concomitant]
     Route: 065
     Dates: start: 19800101
  4. FOSAMAX [Suspect]
     Indication: OSTEOPOROSIS
     Route: 048
     Dates: start: 19951001, end: 20030601
  5. CALCIUM (UNSPECIFIED) AND VITAMIN D (UNSPECIFIED) [Concomitant]
     Route: 065
     Dates: start: 19950101
  6. ASCORBIC ACID [Concomitant]
     Route: 065
     Dates: start: 19800101

REACTIONS (19)
  - TIBIA FRACTURE [None]
  - BLOOD CHOLESTEROL INCREASED [None]
  - FEMUR FRACTURE [None]
  - ARTHRALGIA [None]
  - SCAPULA FRACTURE [None]
  - RIB FRACTURE [None]
  - ANXIETY [None]
  - INJURY [None]
  - ANGIOPATHY [None]
  - FIBULA FRACTURE [None]
  - DEVICE FAILURE [None]
  - ADVERSE EVENT [None]
  - HYPERTENSION [None]
  - ANKLE FRACTURE [None]
  - OSTEOARTHRITIS [None]
  - HYPOTHYROIDISM [None]
  - DEPRESSION [None]
  - FALL [None]
  - EXOSTOSIS [None]
